FAERS Safety Report 18332652 (Version 2)
Quarter: 2021Q1

REPORT INFORMATION
  Report Type: Spontaneous
  Country: US (occurrence: US)
  Receive Date: 20200930
  Receipt Date: 20210111
  Transmission Date: 20210419
  Serious: No
  Sender: FDA-Public Use
  Company Number: US-ASTRAZENECA-2020SF24473

PATIENT
  Age: 714 Month
  Sex: Male
  Weight: 100.7 kg

DRUGS (2)
  1. PEPTO BISMAL [Concomitant]
     Indication: ABDOMINAL DISCOMFORT
  2. BYDUREON BCISE [Suspect]
     Active Substance: EXENATIDE
     Indication: DIABETES MELLITUS
     Route: 058
     Dates: start: 201909

REACTIONS (7)
  - Nausea [Unknown]
  - Asthenia [Unknown]
  - Abdominal discomfort [Unknown]
  - Chills [Unknown]
  - Illness [Unknown]
  - SARS-CoV-2 test negative [Unknown]
  - Vomiting [Unknown]

NARRATIVE: CASE EVENT DATE: 201912
